FAERS Safety Report 8402419-0 (Version None)
Quarter: 2012Q1

REPORT INFORMATION
  Report Type: 
  Country: None (occurrence: None)
  Receive Date: 20120323
  Receipt Date: 20110502
  Transmission Date: 20120608
  Serious: Yes (Disabling, Other)
  Sender: FDA-Public Use
  Company Number: 163-21880-11011498

PATIENT
  Age: 62 Year
  Sex: Female
  Weight: 113.3993 kg

DRUGS (8)
  1. REVLIMID [Suspect]
     Indication: MULTIPLE MYELOMA
     Dosage: 25 MG, DAILY X 21 DAYS, PO
     Route: 048
     Dates: start: 20101221
  2. VITAMIN D (ERGOCALCIFEROL) (UNKNOWN) [Concomitant]
  3. EVISTA [Concomitant]
  4. POTASSIUM (POTASSIUM) (UNKNOWN) [Concomitant]
  5. HYZAAR (HYZAAR) (UNKNOWN) [Concomitant]
  6. CALCITONIN (CALCITONIN) (UNKNOWN) [Concomitant]
  7. OXYCODONE (OXYCODONE) (UNKNOWN) [Concomitant]
  8. VITAMIN B6 (PYRIDOXINE HYDROCHLORIDE) (UNKNOWN) [Concomitant]

REACTIONS (3)
  - FLUID OVERLOAD [None]
  - DYSPNOEA [None]
  - ANAEMIA [None]
